FAERS Safety Report 24328585 (Version 1)
Quarter: 2024Q3

REPORT INFORMATION
  Report Type: Spontaneous
  Country: US (occurrence: US)
  Receive Date: 20240917
  Receipt Date: 20240917
  Transmission Date: 20241016
  Serious: Yes (Other)
  Sender: TEVA
  Company Number: US-TEVA-VS-3242014

PATIENT
  Age: 12 Year
  Sex: Male

DRUGS (1)
  1. EPIPEN [Suspect]
     Active Substance: EPINEPHRINE
     Indication: Product used for unknown indication
     Dosage: STRENGTH: 0.3 MG / 0.3 ML
     Route: 065

REACTIONS (1)
  - Device defective [Unknown]
